FAERS Safety Report 20748922 (Version 2)
Quarter: 2022Q2

REPORT INFORMATION
  Report Type: Spontaneous
  Country: US (occurrence: US)
  Receive Date: 20220426
  Receipt Date: 20220531
  Transmission Date: 20220721
  Serious: No
  Sender: FDA-Public Use
  Company Number: US-PFIZER INC-202200504778

PATIENT
  Age: 11 Year
  Sex: Male
  Weight: 29.48 kg

DRUGS (1)
  1. GENOTROPIN [Suspect]
     Active Substance: SOMATROPIN
     Indication: Growth hormone deficiency
     Dosage: 1.2 MG, UNK
     Dates: start: 2021

REACTIONS (5)
  - Device issue [Unknown]
  - Device mechanical issue [Recovered/Resolved]
  - Poor quality device used [Recovered/Resolved]
  - Intentional device misuse [Not Recovered/Not Resolved]
  - Product dose omission issue [Unknown]

NARRATIVE: CASE EVENT DATE: 20210101
